FAERS Safety Report 9611725 (Version 1)
Quarter: 2013Q4

REPORT INFORMATION
  Report Type: Spontaneous
  Country: US (occurrence: US)
  Receive Date: 20131010
  Receipt Date: 20131010
  Transmission Date: 20140711
  Serious: No
  Sender: FDA-Public Use
  Company Number: US-PFIZER INC-2013287621

PATIENT
  Age: 81 Year
  Sex: Female

DRUGS (16)
  1. XELJANZ [Suspect]
     Indication: RHEUMATOID ARTHRITIS
     Dosage: 5 MG, TWICE A DAY
     Route: 048
  2. LANSOPRAZOLE [Concomitant]
     Dosage: 30 MG, UNK
  3. CARVEDILOL [Concomitant]
     Dosage: 12.5 MG, UNK
  4. EFFIENT [Concomitant]
     Dosage: 10 MG, UNK
  5. ZOLPIDEM [Concomitant]
     Dosage: 5 MG, UNK
  6. LEVOTHYROXINE [Concomitant]
     Dosage: 112 UG, UNK
  7. ASPIRIN ADLT [Concomitant]
     Dosage: 81 MG, UNK
  8. CENTRUM CHW SILVER [Concomitant]
     Dosage: UNK
  9. VITAMIN B12 [Concomitant]
     Dosage: 1000 CR, UNK
  10. ALENDRONATE [Concomitant]
     Dosage: 10 MG, UNK
  11. LISINOPRIL [Concomitant]
     Dosage: 10 MG, UNK
  12. PAROXETIN ER [Concomitant]
     Dosage: 12.5 MG, UNK
  13. VITAMIN D [Concomitant]
     Dosage: 1000 IU, UNK
  14. CRESTOR [Concomitant]
     Dosage: 20 MG, UNK
  15. POTASSIUM [Concomitant]
     Dosage: 99 MG, UNK
  16. LASIX [Concomitant]
     Dosage: 80 MG, UNK

REACTIONS (1)
  - Drug ineffective [Unknown]
